FAERS Safety Report 6283169-6 (Version None)
Quarter: 2009Q3

REPORT INFORMATION
  Report Type: 
  Country: None (occurrence: None)
  Receive Date: 20090724
  Receipt Date: 20090716
  Transmission Date: 20100115
  Serious: Yes (Other)
  Sender: FDA-Public Use
  Company Number: B0583613A

PATIENT
  Age: 11 Year
  Sex: Female

DRUGS (1)
  1. LAMICTAL [Suspect]
     Indication: FRONTAL LOBE EPILEPSY
     Route: 048

REACTIONS (4)
  - CONVULSION [None]
  - EPILEPSY [None]
  - LEARNING DISORDER [None]
  - MENTAL IMPAIRMENT [None]
